FAERS Safety Report 22063940 (Version 2)
Quarter: 2023Q1

REPORT INFORMATION
  Report Type: Spontaneous
  Country: AU (occurrence: AU)
  Receive Date: 20230306
  Receipt Date: 20230317
  Transmission Date: 20230418
  Serious: Yes (Hospitalization, Other)
  Sender: FDA-Public Use
  Company Number: AU-SA-2023SA063806

PATIENT
  Age: 81 Year
  Sex: Male

DRUGS (3)
  1. CLOPIDOGREL BISULFATE [Suspect]
     Active Substance: CLOPIDOGREL BISULFATE
     Indication: Atrial fibrillation
     Dosage: 75 MG
  2. APIXABAN [Suspect]
     Active Substance: APIXABAN
     Indication: Cerebrovascular accident prophylaxis
     Dosage: 5 MG, QD
  3. ASPIRIN [Suspect]
     Active Substance: ASPIRIN
     Indication: Atrial fibrillation
     Dosage: 100 MG

REACTIONS (3)
  - Arterial haemorrhage [Recovered/Resolved]
  - Melaena [Recovered/Resolved]
  - Haemoglobin decreased [Recovered/Resolved]
